FAERS Safety Report 15773132 (Version 1)
Quarter: 2018Q4

REPORT INFORMATION
  Report Type: Spontaneous
  Country: GB (occurrence: GB)
  Receive Date: 20181228
  Receipt Date: 20181228
  Transmission Date: 20190205
  Serious: Yes (Life-Threatening, Hospitalization, Other)
  Sender: FDA-Public Use
  Company Number: GB-PFIZER INC-16372

PATIENT
  Age: 50 Year
  Sex: Female

DRUGS (6)
  1. ACTONEL [Concomitant]
     Active Substance: RISEDRONATE SODIUM
     Dosage: 35 MG, FREQ UNKNOWN
     Route: 048
     Dates: start: 20050101
  2. METHOTREXATE SODIUM. [Suspect]
     Active Substance: METHOTREXATE SODIUM
     Indication: RHEUMATOID ARTHRITIS
     Dosage: 5 MG, WEEKLY
     Route: 048
     Dates: start: 20050101, end: 20070410
  3. PREDNISOLONE /00016202/ [Concomitant]
     Active Substance: PREDNISOLONE
     Dosage: 5 MG, 1X/DAY
     Route: 048
     Dates: start: 20020101
  4. ROFECOXIB [Concomitant]
     Active Substance: ROFECOXIB
     Route: 065
  5. HUMIRA [Suspect]
     Active Substance: ADALIMUMAB
     Indication: RHEUMATOID ARTHRITIS
     Dosage: 40 MG, EVERY 2 WEEKS
     Route: 058
     Dates: start: 20030331, end: 20070410
  6. CALCIUM [Concomitant]
     Active Substance: CALCIUM

REACTIONS (1)
  - Endometrial adenocarcinoma [Not Recovered/Not Resolved]

NARRATIVE: CASE EVENT DATE: 20070410
